FAERS Safety Report 8922166 (Version 1)
Quarter: 2012Q4

REPORT INFORMATION
  Report Type: Spontaneous
  Country: US (occurrence: None)
  Receive Date: 20121120
  Receipt Date: 20121120
  Transmission Date: 20130627
  Serious: Yes (Disabling)
  Sender: FDA-Public Use
  Company Number: None

PATIENT
  Age: 70 Year
  Sex: Female
  Weight: 61.24 kg

DRUGS (2)
  1. ACTONEL [Suspect]
     Indication: OSTEOPOROSIS
     Route: 048
     Dates: start: 19980423, end: 20050520
  2. FORTICAL [Suspect]

REACTIONS (8)
  - Osteoporosis [None]
  - Condition aggravated [None]
  - Stomatitis [None]
  - Mouth haemorrhage [None]
  - Impaired healing [None]
  - Toothache [None]
  - Gingival swelling [None]
  - Bone disorder [None]
